FAERS Safety Report 21623639 (Version 1)
Quarter: 2022Q4

REPORT INFORMATION
  Report Type: Spontaneous
  Country: US (occurrence: US)
  Receive Date: 20221121
  Receipt Date: 20221121
  Transmission Date: 20230112
  Serious: Yes (Other)
  Sender: FDA-Public Use
  Company Number: US-BRISTOL-MYERS SQUIBB COMPANY-2022-139804

PATIENT
  Age: 53 Year
  Sex: Female

DRUGS (1)
  1. ORENCIA [Suspect]
     Active Substance: ABATACEPT
     Indication: Rheumatoid arthritis
     Dosage: ORENCIA CLICKJECT AUTOINJ
     Route: 058
     Dates: start: 20190821

REACTIONS (7)
  - Anxiety [Unknown]
  - Injection site reaction [Unknown]
  - Dry eye [Unknown]
  - Pneumonia [Unknown]
  - Feeling hot [Unknown]
  - Chills [Unknown]
  - Chest discomfort [Unknown]
